FAERS Safety Report 16662030 (Version 2)
Quarter: 2020Q1

REPORT INFORMATION
  Report Type: Report from Study
  Country: US (occurrence: US)
  Receive Date: 20190802
  Receipt Date: 20200129
  Transmission Date: 20200409
  Serious: No
  Sender: FDA-Public Use
  Company Number: US-EXELIXIS-CABO-19019064

PATIENT
  Sex: Male
  Weight: 113.38 kg

DRUGS (7)
  1. CALCIUM 600+VIT D [Concomitant]
     Active Substance: CALCIUM\ERGOCALCIFEROL
  2. VITAMIN B-6 [Concomitant]
     Active Substance: PYRIDOXINE
  3. PRILOSEC [Concomitant]
     Active Substance: OMEPRAZOLE MAGNESIUM
  4. CABOMETYX [Suspect]
     Active Substance: CABOZANTINIB S-MALATE
     Indication: RENAL CELL CARCINOMA
     Dosage: 60 MG, QD
     Route: 048
     Dates: start: 20180914
  5. VITAMIN D3 [Concomitant]
     Active Substance: CHOLECALCIFEROL
  6. CENTRUM [Concomitant]
     Active Substance: VITAMINS
  7. TYLENOL [Concomitant]
     Active Substance: ACETAMINOPHEN

REACTIONS (1)
  - Adverse drug reaction [Unknown]
